FAERS Safety Report 11866168 (Version 2)
Quarter: 2016Q3

REPORT INFORMATION
  Report Type: Report from Study
  Country: US (occurrence: US)
  Receive Date: 20151223
  Receipt Date: 20160804
  Transmission Date: 20161109
  Serious: Yes (Other)
  Sender: FDA-Public Use
  Company Number: US-EXELIXIS-CABO-15005745

PATIENT
  Age: 64 Year
  Sex: Male

DRUGS (15)
  1. SYNTHROID [Concomitant]
     Active Substance: LEVOTHYROXINE SODIUM
  2. LIPITOR [Concomitant]
     Active Substance: ATORVASTATIN CALCIUM
  3. REGLAN [Concomitant]
     Active Substance: METOCLOPRAMIDE HYDROCHLORIDE
  4. PROTONIX [Concomitant]
     Active Substance: PANTOPRAZOLE SODIUM
  5. COMETRIQ [Suspect]
     Active Substance: CABOZANTINIB S-MALATE
     Indication: THYROID CANCER
     Dosage: 140 MG, QD
     Route: 048
     Dates: start: 20150918, end: 20151014
  6. CELEXA [Concomitant]
     Active Substance: CITALOPRAM HYDROBROMIDE
  7. COMETRIQ [Suspect]
     Active Substance: CABOZANTINIB S-MALATE
     Dosage: 60 MG, QD
     Route: 048
     Dates: start: 20160101, end: 20160121
  8. COMETRIQ [Suspect]
     Active Substance: CABOZANTINIB S-MALATE
     Dosage: 60 MG, QD
     Route: 048
     Dates: start: 20160130, end: 201602
  9. CLONIDINE. [Concomitant]
     Active Substance: CLONIDINE
  10. LISINOPRIL. [Concomitant]
     Active Substance: LISINOPRIL
  11. PROZAC [Concomitant]
     Active Substance: FLUOXETINE HYDROCHLORIDE
  12. ZOFRAN [Concomitant]
     Active Substance: ONDANSETRON HYDROCHLORIDE
  13. COMETRIQ [Suspect]
     Active Substance: CABOZANTINIB S-MALATE
     Dosage: 80 MG, QD
     Route: 048
     Dates: start: 20151109, end: 20151201
  14. IMODIUM [Concomitant]
     Active Substance: LOPERAMIDE HYDROCHLORIDE
  15. ASPIRIN. [Concomitant]
     Active Substance: ASPIRIN

REACTIONS (29)
  - Platelet count decreased [Recovered/Resolved]
  - Glossodynia [Unknown]
  - Impaired driving ability [Not Recovered/Not Resolved]
  - Drug interaction [Unknown]
  - Motion sickness [Unknown]
  - Epistaxis [Not Recovered/Not Resolved]
  - Skin burning sensation [Unknown]
  - Activities of daily living impaired [Not Recovered/Not Resolved]
  - Decreased appetite [Not Recovered/Not Resolved]
  - Mucosal inflammation [Unknown]
  - Testicular pain [Not Recovered/Not Resolved]
  - Dysgeusia [Not Recovered/Not Resolved]
  - Pain in extremity [Unknown]
  - Dizziness [Not Recovered/Not Resolved]
  - Arthralgia [Not Recovered/Not Resolved]
  - Facial pain [Unknown]
  - Skin ulcer [Not Recovered/Not Resolved]
  - Influenza like illness [Not Recovered/Not Resolved]
  - Back pain [Unknown]
  - Weight decreased [Unknown]
  - Nausea [Not Recovered/Not Resolved]
  - Diarrhoea [Not Recovered/Not Resolved]
  - Constipation [Unknown]
  - Lacrimation increased [Recovered/Resolved]
  - Dyspepsia [Unknown]
  - Coronary artery disease [Unknown]
  - Nasal dryness [Not Recovered/Not Resolved]
  - Malaise [Not Recovered/Not Resolved]
  - Malignant neoplasm progression [Unknown]

NARRATIVE: CASE EVENT DATE: 20151021
